FAERS Safety Report 8382584-4 (Version None)
Quarter: 2012Q2

REPORT INFORMATION
  Report Type: 
  Country: None (occurrence: None)
  Receive Date: 20120524
  Receipt Date: 20120523
  Transmission Date: 20120825
  Serious: Yes (Disabling)
  Sender: FDA-Public Use
  Company Number: PHHY2012IT019758

PATIENT
  Sex: Female

DRUGS (9)
  1. LANSOPRAZOLE [Concomitant]
  2. ASPIRIN [Concomitant]
  3. CORDARONE [Concomitant]
  4. ZOMETA [Suspect]
     Indication: MULTIPLE MYELOMA
     Dosage: 4 MG, CYCLIC DOSE
     Route: 042
     Dates: start: 20090909, end: 20110301
  5. LASIX [Concomitant]
  6. ALKERAN [Concomitant]
  7. PREDNISONE TAB [Concomitant]
  8. BISOPROLOL FUMARATE [Concomitant]
  9. ALLOPURINOL [Concomitant]

REACTIONS (2)
  - OSTEONECROSIS OF JAW [None]
  - EXPOSED BONE IN JAW [None]
